FAERS Safety Report 23531341 (Version 1)
Quarter: 2024Q1

REPORT INFORMATION
  Report Type: Spontaneous
  Country: US (occurrence: US)
  Receive Date: 20240216
  Receipt Date: 20240216
  Transmission Date: 20240410
  Serious: No
  Sender: FDA-Public Use
  Company Number: US-Pharmaand-2023001233

PATIENT
  Sex: Female
  Weight: 82.6 kg

DRUGS (7)
  1. RUBRACA [Suspect]
     Active Substance: RUCAPARIB CAMSYLATE
     Indication: Ovarian cancer
     Dosage: 200MG TABLETS TAKE 3 TABLETS BY MOUTH TWICE A DAY
     Route: 048
     Dates: start: 20230524
  2. LISINOPRIL [Concomitant]
     Active Substance: LISINOPRIL
  3. ONDANSETRON HYDROCHLORIDE [Concomitant]
     Active Substance: ONDANSETRON HYDROCHLORIDE
  4. POTASSIUM CHLORIDE [Concomitant]
     Active Substance: POTASSIUM CHLORIDE
  5. ROSUVASTATIN CALCIUM [Concomitant]
     Active Substance: ROSUVASTATIN CALCIUM
  6. TRIAMTERENE-HYDROCHLOROTHIZIDE [Concomitant]
  7. VERAPAMIL [Concomitant]
     Active Substance: VERAPAMIL HYDROCHLORIDE

REACTIONS (1)
  - Renal disorder [Not Recovered/Not Resolved]
